FAERS Safety Report 5826381-X (Version None)
Quarter: 2008Q3

REPORT INFORMATION
  Report Type: 
  Country: None (occurrence: None)
  Receive Date: 20080729
  Receipt Date: 20080710
  Transmission Date: 20090109
  Serious: No
  Sender: FDA-Public Use
  Company Number: US-BOEHRINGER INGELHEIM GMBH, GERMANY-2008-BP-09820BP

PATIENT
  Sex: Female

DRUGS (5)
  1. CLONIDINE HCL [Suspect]
     Indication: HYPERTENSION
     Dates: start: 20080307, end: 20080606
  2. EXFORGE [Concomitant]
  3. METOPROLOL TARTRATE [Concomitant]
  4. SIMVASTATIN [Concomitant]
  5. CENTRUM SILVER VITAMINS [Concomitant]

REACTIONS (1)
  - SOMNOLENCE [None]
